FAERS Safety Report 20037904 (Version 1)
Quarter: 2021Q4

REPORT INFORMATION
  Report Type: Spontaneous
  Country: US (occurrence: US)
  Receive Date: 20211105
  Receipt Date: 20211105
  Transmission Date: 20220303
  Serious: Yes (Hospitalization)
  Sender: FDA-Public Use
  Company Number: US-JNJFOC-20211052204

PATIENT
  Age: 27 Year
  Sex: Male
  Weight: 70.370 kg

DRUGS (3)
  1. STELARA [Suspect]
     Active Substance: USTEKINUMAB
     Indication: Crohn^s disease
     Dosage: BEEN ON THE PRODUCT FOR MAYBE 2-3 YEARS, LIKELY JUST 2 YEARS
     Route: 058
     Dates: end: 20210831
  2. FAMOTIDINE [Concomitant]
     Active Substance: FAMOTIDINE
  3. COVID-19 VACCINE [Concomitant]
     Dosage: RECEIVED BOTH PFIZER COVID-19 VACCINATIONS
     Dates: start: 20210802

REACTIONS (1)
  - Crohn^s disease [Unknown]

NARRATIVE: CASE EVENT DATE: 20211001
